FAERS Safety Report 18595110 (Version 4)
Quarter: 2021Q1

REPORT INFORMATION
  Report Type: Report from Study
  Country: JP (occurrence: JP)
  Receive Date: 20201209
  Receipt Date: 20210317
  Transmission Date: 20210419
  Serious: Yes (Hospitalization)
  Sender: FDA-Public Use
  Company Number: JP-PFIZER INC-2020478064

PATIENT
  Age: 95 Year
  Sex: Female
  Weight: 52 kg

DRUGS (8)
  1. NEXIUM [Concomitant]
     Active Substance: ESOMEPRAZOLE MAGNESIUM
     Route: 048
  2. XELJANZ [Suspect]
     Active Substance: TOFACITINIB CITRATE
     Dosage: 5 MG X 1, ALTERNATE DAY
     Dates: start: 20170915, end: 20171110
  3. XELJANZ [Suspect]
     Active Substance: TOFACITINIB CITRATE
     Dosage: 5 MG, 1X/DAY
     Dates: start: 20170325, end: 20170331
  4. EDIROL [Concomitant]
     Active Substance: ELDECALCITOL
     Route: 048
  5. XELJANZ [Suspect]
     Active Substance: TOFACITINIB CITRATE
     Indication: RHEUMATOID ARTHRITIS
     Dosage: 5 MG, 2X/DAY
     Dates: start: 20161125, end: 20170324
  6. XELJANZ [Suspect]
     Active Substance: TOFACITINIB CITRATE
     Dosage: 5 MG, 2X/DAY
     Dates: start: 20170401, end: 20170824
  7. XELJANZ [Suspect]
     Active Substance: TOFACITINIB CITRATE
     Dosage: 5 MG X 2, ALTERNATE DAY
     Dates: start: 20170901, end: 20170914
  8. LOXONIN [Concomitant]
     Active Substance: LOXOPROFEN SODIUM
     Route: 048

REACTIONS (3)
  - Rheumatoid arthritis [Recovering/Resolving]
  - Osteoarthritis [Recovering/Resolving]
  - Condition aggravated [Recovering/Resolving]

NARRATIVE: CASE EVENT DATE: 201711
